FAERS Safety Report 21137076 (Version 2)
Quarter: 2022Q3

REPORT INFORMATION
  Report Type: Spontaneous
  Country: AR (occurrence: AR)
  Receive Date: 20220727
  Receipt Date: 20220817
  Transmission Date: 20221027
  Serious: Yes (Other)
  Sender: FDA-Public Use
  Company Number: AR-PFIZER INC-PV202200029842

PATIENT
  Age: 67 Year
  Sex: Female

DRUGS (4)
  1. IBRANCE [Suspect]
     Active Substance: PALBOCICLIB
     Indication: Breast cancer metastatic
     Dosage: DAILY, SCHEME 3X1
     Dates: start: 20200330
  2. IBRANCE [Suspect]
     Active Substance: PALBOCICLIB
     Dosage: DAILY, SCHEME 3X1
     Dates: start: 20200330, end: 20200914
  3. IBRANCE [Suspect]
     Active Substance: PALBOCICLIB
     Dosage: DAILY, SCHEME 3X1
     Dates: start: 20200915
  4. FULVESTRANT [Concomitant]
     Active Substance: FULVESTRANT
     Dosage: UNK
     Dates: start: 20200330

REACTIONS (1)
  - Thrombosis [Not Recovered/Not Resolved]

NARRATIVE: CASE EVENT DATE: 20220705
